FAERS Safety Report 9009271 (Version 1)
Quarter: 2013Q1

REPORT INFORMATION
  Report Type: Spontaneous
  Country: FR (occurrence: FR)
  Receive Date: 20130111
  Receipt Date: 20130111
  Transmission Date: 20140127
  Serious: Yes (Life-Threatening, Hospitalization)
  Sender: FDA-Public Use
  Company Number: FR-GLAXOSMITHKLINE-B0855930A

PATIENT
  Age: 65 Year
  Sex: Female

DRUGS (2)
  1. ZINNAT [Suspect]
     Indication: PROPHYLAXIS
     Dosage: 1.5G SINGLE DOSE
     Route: 042
     Dates: start: 20121028, end: 20121028
  2. GENTIAN VIOLET [Suspect]
     Indication: PRODUCT USED FOR UNKNOWN INDICATION
     Route: 058
     Dates: start: 20121028, end: 20121028

REACTIONS (4)
  - Anaphylactic shock [Recovered/Resolved]
  - Bronchospasm [Recovered/Resolved]
  - Tachycardia [Recovered/Resolved]
  - Hypotension [Recovered/Resolved]
